FAERS Safety Report 24610767 (Version 1)
Quarter: 2024Q4

REPORT INFORMATION
  Report Type: Spontaneous
  Country: GB (occurrence: GB)
  Receive Date: 20241112
  Receipt Date: 20241112
  Transmission Date: 20250115
  Serious: Yes (Other)
  Sender: ANI
  Company Number: GB-ANIPHARMA-2024-UK-000220

PATIENT
  Sex: Female
  Weight: 62 kg

DRUGS (3)
  1. ARIMIDEX [Suspect]
     Active Substance: ANASTROZOLE
     Indication: Adverse drug reaction
     Dosage: ONE MG DAILY
     Dates: start: 20200929, end: 20240806
  2. ASPIRIN [Concomitant]
     Active Substance: ASPIRIN
  3. VENLAFAXINE [Concomitant]
     Active Substance: VENLAFAXINE HYDROCHLORIDE

REACTIONS (1)
  - Visual acuity reduced [Unknown]
